FAERS Safety Report 7318962-1 (Version None)
Quarter: 2011Q1

REPORT INFORMATION
  Report Type: 
  Country: None (occurrence: None)
  Receive Date: 20110228
  Receipt Date: 20110215
  Transmission Date: 20110831
  Serious: Yes (Other)
  Sender: FDA-Public Use
  Company Number: JP-ELI_LILLY_AND_COMPANY-JP201102006080

PATIENT
  Age: 35 Year
  Sex: Female

DRUGS (3)
  1. DEPAS [Concomitant]
     Indication: MUSCULOSKELETAL STIFFNESS
     Route: 048
  2. CYMBALTA [Suspect]
     Indication: DEPRESSION
     Dosage: 20 MG, DAILY (1/D)
     Route: 048
     Dates: start: 20110207, end: 20110209
  3. JUUZENTAIHOTOU [Concomitant]
     Indication: CHRONIC FATIGUE SYNDROME
     Dosage: UNK, UNK
     Route: 048

REACTIONS (3)
  - MALAISE [None]
  - DECREASED APPETITE [None]
  - LOSS OF CONSCIOUSNESS [None]
